FAERS Safety Report 7066404-6 (Version None)
Quarter: 2010Q4

REPORT INFORMATION
  Report Type: 
  Country: None (occurrence: None)
  Receive Date: 20101027
  Receipt Date: 20091215
  Transmission Date: 20110411
  Serious: No
  Sender: FDA-Public Use
  Company Number: US-WYE-H12657009

PATIENT
  Sex: Female
  Weight: 75.36 kg

DRUGS (1)
  1. PREMPRO [Suspect]
     Indication: HOT FLUSH
     Dosage: 0.45 MG/1.5 MG (FREQUENCY UNSPECIFIED)
     Route: 048
     Dates: start: 20091118

REACTIONS (3)
  - ABDOMINAL PAIN [None]
  - VAGINAL HAEMORRHAGE [None]
  - WEIGHT INCREASED [None]
